FAERS Safety Report 21866845 (Version 3)
Quarter: 2023Q2

REPORT INFORMATION
  Report Type: Spontaneous
  Country: US (occurrence: US)
  Receive Date: 20230116
  Receipt Date: 20230410
  Transmission Date: 20230722
  Serious: Yes (Hospitalization)
  Sender: FDA-Public Use
  Company Number: US-PFIZER INC-202300017673

PATIENT
  Age: 66 Year
  Sex: Female
  Weight: 101.59 kg

DRUGS (2)
  1. PAXLOVID [Suspect]
     Active Substance: NIRMATRELVIR\RITONAVIR
     Indication: COVID-19 treatment
     Dosage: UNK
     Dates: start: 20221227, end: 20221230
  2. EQUATE ANTACID [Concomitant]
     Active Substance: CALCIUM CARBONATE
     Dosage: UNK
     Dates: start: 20221001

REACTIONS (20)
  - Dysgeusia [Recovered/Resolved]
  - Headache [Recovering/Resolving]
  - Nausea [Recovered/Resolved]
  - Dizziness [Recovered/Resolved]
  - Fatigue [Recovering/Resolving]
  - Throat irritation [Recovering/Resolving]
  - Chills [Recovering/Resolving]
  - Gastrooesophageal reflux disease [Recovering/Resolving]
  - Cough [Recovering/Resolving]
  - Chest pain [Recovering/Resolving]
  - Pain [Recovering/Resolving]
  - Pain in extremity [Recovering/Resolving]
  - Paraesthesia [Recovering/Resolving]
  - Dyspnoea [Recovering/Resolving]
  - Wheezing [Recovering/Resolving]
  - Oral herpes [Recovering/Resolving]
  - Ear pain [Recovering/Resolving]
  - Hyperhidrosis [Recovering/Resolving]
  - Decreased appetite [Recovered/Resolved]
  - Asthenia [Recovered/Resolved]

NARRATIVE: CASE EVENT DATE: 20221229
